FAERS Safety Report 11526753 (Version 1)
Quarter: 2015Q3

REPORT INFORMATION
  Report Type: Spontaneous
  Country: US (occurrence: US)
  Receive Date: 20150903
  Receipt Date: 20150903
  Transmission Date: 20151125
  Serious: No
  Sender: FDA-Public Use
  Company Number: US-ELI_LILLY_AND_COMPANY-US201406002566

PATIENT
  Sex: Male

DRUGS (5)
  1. MILNACIPRAN [Suspect]
     Active Substance: MILNACIPRAN
     Dosage: 50 MG, BID
     Route: 065
  2. CYMBALTA [Suspect]
     Active Substance: DULOXETINE HYDROCHLORIDE
     Dosage: 60 MG, BID
     Route: 065
     Dates: start: 20140519
  3. MILNACIPRAN [Suspect]
     Active Substance: MILNACIPRAN
     Indication: PAIN
     Dosage: 12.5 MG, QD
     Route: 065
     Dates: start: 201405
  4. MILNACIPRAN [Suspect]
     Active Substance: MILNACIPRAN
     Dosage: 50 MG, QD
     Route: 065
     Dates: end: 20140519
  5. CYMBALTA [Suspect]
     Active Substance: DULOXETINE HYDROCHLORIDE
     Indication: PAIN
     Dosage: 60 MG, BID
     Route: 065
     Dates: end: 20140506

REACTIONS (3)
  - Off label use [Unknown]
  - Lethargy [Unknown]
  - Tremor [Unknown]

NARRATIVE: CASE EVENT DATE: 20140511
